FAERS Safety Report 9093840 (Version 3)
Quarter: 2013Q1

REPORT INFORMATION
  Report Type: Spontaneous
  Country: US (occurrence: None)
  Receive Date: 20130122
  Receipt Date: 20130305
  Transmission Date: 20140127
  Serious: Yes (Other)
  Sender: FDA-Public Use
  Company Number: AUR-APL-2013-00814

PATIENT
  Age: 48 Year
  Sex: Female
  Weight: 78.93 kg

DRUGS (4)
  1. CIPROFLOXACIN [Suspect]
     Indication: BRONCHITIS
     Route: 048
     Dates: start: 20121218, end: 20121218
  2. EYE VITAMINS [Concomitant]
  3. FLONASE(FLUTICASONE PROPIONATE) [Concomitant]
  4. EYE DROPS COMBIGAN (COMBIGAN) [Concomitant]

REACTIONS (10)
  - Hypoaesthesia [None]
  - Hypoaesthesia [None]
  - Hypoaesthesia [None]
  - Pain in extremity [None]
  - Myalgia [None]
  - Pain in extremity [None]
  - Muscle spasms [None]
  - Muscle twitching [None]
  - Muscle spasms [None]
  - Arthropathy [None]
